FAERS Safety Report 18334888 (Version 1)
Quarter: 2020Q4

REPORT INFORMATION
  Report Type: Spontaneous
  Country: DE (occurrence: DE)
  Receive Date: 20201001
  Receipt Date: 20201001
  Transmission Date: 20210113
  Serious: Yes (Hospitalization)
  Sender: FDA-Public Use
  Company Number: DE-TEVA-2020-DE-1832102

PATIENT
  Age: 86 Year
  Sex: Female

DRUGS (14)
  1. METAMIZOL [Concomitant]
     Active Substance: METAMIZOLE SODIUM
     Dosage: 160 GTT DAILY; 1-1-1-1
  2. ACETYLSALICYLSAURE [Concomitant]
     Active Substance: ASPIRIN
     Dosage: 100 MILLIGRAM DAILY; 0-1-0-0
  3. TAMOXIFEN [Suspect]
     Active Substance: TAMOXIFEN
     Dosage: 20 MILLIGRAM DAILY;  1-0-0-0
  4. LORAZEPAM. [Concomitant]
     Active Substance: LORAZEPAM
     Dosage: .5 MILLIGRAM DAILY;  0-0-0-1
  5. SERTRALIN [Concomitant]
     Active Substance: SERTRALINE HYDROCHLORIDE
     Dosage: 100 MILLIGRAM DAILY;  1-0-0-0
  6. ENALAPRIL [Suspect]
     Active Substance: ENALAPRIL
     Dosage: 40 MILLIGRAM DAILY; 1-0-1-0
  7. AMLODIPIN [Concomitant]
     Active Substance: AMLODIPINE BESYLATE
     Dosage: 10 MILLIGRAM DAILY;  1-0-1-0
  8. LEVOTHYROXIN-NATRIUM [Concomitant]
     Active Substance: LEVOTHYROXINE SODIUM
     Dosage: 75 MICROGRAM DAILY;   1-0-0-0
  9. PANTOPRAZOL [Concomitant]
     Active Substance: PANTOPRAZOLE SODIUM
     Dosage: 40 MILLIGRAM DAILY;   1-0-0-0
  10. INSPIOLTO RESPIMAT 2,5MIKROGRAMM/2,5MIKROGRAMM [Concomitant]
     Dosage: 1 DOSAGE FORMS DAILY; 2.5 | 2.5 MCG, 1-0-0-0,
     Route: 055
  11. FENTANYL. [Concomitant]
     Active Substance: FENTANYL
     Dosage: 25 MCG / H, LAST CHANGE 14-JUN-2020
     Route: 062
  12. LORAZEPAM. [Concomitant]
     Active Substance: LORAZEPAM
     Dosage: 0.5 MG, 3X
  13. CAPROS 10MG [Concomitant]
     Dosage: 10 MG, 5X
  14. DEXAMETHASON [Concomitant]
     Active Substance: DEXAMETHASONE
     Dosage: 8 MILLIGRAM DAILY;  1-0-0-0

REACTIONS (2)
  - Dyspnoea [Unknown]
  - General physical health deterioration [Unknown]
